FAERS Safety Report 6085171-6 (Version None)
Quarter: 2009Q1

REPORT INFORMATION
  Report Type: 
  Country: None (occurrence: None)
  Receive Date: 20090220
  Receipt Date: 20090218
  Transmission Date: 20090719
  Serious: Yes (Other)
  Sender: FDA-Public Use
  Company Number: JP-ASTRAZENECA-2009AP01287

PATIENT
  Sex: Female

DRUGS (2)
  1. ARIMIDEX [Suspect]
     Indication: BREAST CANCER
     Route: 048
     Dates: start: 20070101, end: 20090201
  2. ZOMETA [Suspect]
     Indication: METASTASES TO BONE
     Dosage: DOSE UNKNOWN
     Route: 041
     Dates: start: 20080101, end: 20090218

REACTIONS (1)
  - GINGIVAL PAIN [None]
